FAERS Safety Report 4988415-4 (Version None)
Quarter: 2006Q2

REPORT INFORMATION
  Report Type: 
  Country: None (occurrence: None)
  Receive Date: 20060426
  Receipt Date: 20060417
  Transmission Date: 20061013
  Serious: Yes (Other)
  Sender: FDA-Public Use
  Company Number: 2006052066

PATIENT
  Sex: Female

DRUGS (4)
  1. BENADRYL [Suspect]
     Dosage: ORAL
     Route: 048
     Dates: start: 19990101
  2. ZOLOFT [Suspect]
  3. AMLODIPINE BESYLATE [Concomitant]
  4. WARFARIN SODIUM [Concomitant]

REACTIONS (3)
  - DYSTONIA [None]
  - EYE DISORDER [None]
  - NASOPHARYNGEAL DISORDER [None]
